FAERS Safety Report 15459774 (Version 1)
Quarter: 2018Q4

REPORT INFORMATION
  Report Type: Spontaneous
  Country: US (occurrence: US)
  Receive Date: 20181001
  Receipt Date: 20181001
  Transmission Date: 20190204
  Serious: Yes (Death)
  Sender: FDA-Public Use
  Company Number: None

PATIENT
  Age: 77 Year
  Sex: Male

DRUGS (1)
  1. ERBITUX [Suspect]
     Active Substance: CETUXIMAB

REACTIONS (6)
  - Cardiac arrest [None]
  - Head and neck cancer [None]
  - Dizziness [None]
  - Cardio-respiratory arrest [None]
  - Pruritus [None]
  - Sudden cardiac death [None]

NARRATIVE: CASE EVENT DATE: 20180103
